FAERS Safety Report 21931695 (Version 1)
Quarter: 2023Q1

REPORT INFORMATION
  Report Type: Spontaneous
  Country: CN (occurrence: CN)
  Receive Date: 20230131
  Receipt Date: 20230131
  Transmission Date: 20230418
  Serious: Yes (Hospitalization, Other)
  Sender: FDA-Public Use
  Company Number: CN-GLAXOSMITHKLINE-CNCH2023APC004199

PATIENT

DRUGS (4)
  1. VOLTAREN [Suspect]
     Active Substance: DICLOFENAC SODIUM
     Indication: Pain in extremity
     Dosage: 1 DF, QD
     Route: 048
     Dates: start: 20230104, end: 20230104
  2. PHENYLBUTAZONE [Suspect]
     Active Substance: PHENYLBUTAZONE
     Indication: Pain in extremity
     Dosage: UNK
     Route: 048
     Dates: start: 20230104, end: 20230104
  3. HERBALS [Suspect]
     Active Substance: HERBALS
     Indication: Pain in extremity
     Dosage: 5 DF, QD
     Route: 048
     Dates: start: 20230104, end: 20230104
  4. HERBALS [Suspect]
     Active Substance: HERBALS
     Indication: Pain in extremity
     Dosage: 4 DF, QD
     Route: 048
     Dates: start: 20230104, end: 20230104

REACTIONS (9)
  - Drug eruption [Recovering/Resolving]
  - Erythema multiforme [Recovering/Resolving]
  - Oral mucosal blistering [Recovering/Resolving]
  - Oral mucosa erosion [Recovering/Resolving]
  - Erythema [Recovering/Resolving]
  - Blister [Recovering/Resolving]
  - Pain [Recovering/Resolving]
  - Rash [Recovering/Resolving]
  - Skin erosion [Recovering/Resolving]

NARRATIVE: CASE EVENT DATE: 20230104
